FAERS Safety Report 7860062-6 (Version None)
Quarter: 2011Q4

REPORT INFORMATION
  Report Type: 
  Country: None (occurrence: None)
  Receive Date: 20111025
  Receipt Date: 20111018
  Transmission Date: 20120403
  Serious: No
  Sender: FDA-Public Use
  Company Number: 2011-01299

PATIENT
  Sex: Female
  Weight: 59.8748 kg

DRUGS (7)
  1. TUMERIC [Concomitant]
  2. ZICAM COLD REMEDY NASAL GEL [Suspect]
     Indication: NASOPHARYNGITIS
     Dates: start: 20020101, end: 20100101
  3. COD LIVER OIL [Concomitant]
  4. PROTEIN POWDER [Concomitant]
  5. VITAMIN B COMPLEX CAP [Concomitant]
  6. GLUCOSAMINE CHONDROITIN [Concomitant]
  7. VITAMIN D [Concomitant]

REACTIONS (1)
  - HYPOSMIA [None]
